FAERS Safety Report 5866956-5 (Version None)
Quarter: 2008Q3

REPORT INFORMATION
  Report Type: 
  Country: None (occurrence: None)
  Receive Date: 20080902
  Receipt Date: 20080901
  Transmission Date: 20090109
  Serious: Yes (Other)
  Sender: FDA-Public Use
  Company Number: A0745342A

PATIENT
  Age: 59 Year
  Sex: Female

DRUGS (5)
  1. ALLI [Suspect]
     Indication: WEIGHT LOSS DIET
     Route: 048
     Dates: start: 20080801
  2. LEVOXYL [Concomitant]
  3. HYDROCHLOROTHIAZIDE [Concomitant]
  4. PREMARIN [Concomitant]
  5. MULTI-VITAMIN [Concomitant]

REACTIONS (3)
  - ANAEMIA [None]
  - BLOOD IRON DECREASED [None]
  - HAEMORRHAGE [None]
